FAERS Safety Report 4918101-8 (Version None)
Quarter: 2006Q1

REPORT INFORMATION
  Report Type: 
  Country: None (occurrence: None)
  Receive Date: 20060215
  Receipt Date: 20060131
  Transmission Date: 20060701
  Serious: Yes (Hospitalization)
  Sender: FDA-Public Use
  Company Number: PAR_0497_2006

PATIENT
  Age: 18 Month
  Sex: Female

DRUGS (13)
  1. SULFAMETHOXAZOLE + TRIMETHOPRIM [Suspect]
     Indication: PNEUMOCYSTIS JIROVECI PNEUMONIA
     Dosage: 120 MG QDAY
  2. SULFAMETHOXAZOLE + TRIMETHOPRIM [Suspect]
     Indication: PNEUMOCYSTIS JIROVECI PNEUMONIA
     Dosage: 7.5 MG
  3. SULFAMETHOXAZOLE + TRIMETHOPRIM [Suspect]
     Indication: PNEUMOCYSTIS JIROVECI PNEUMONIA
     Dosage: 50 MG BID
  4. STEROIDS [Concomitant]
  5. CYCLOSPORINE [Concomitant]
  6. AZATHIOPRINE [Concomitant]
  7. METHYLPREDNISOLONE [Concomitant]
  8. CIPROFLOXACIN [Concomitant]
  9. ACYCLOVIR SODIUM [Concomitant]
  10. FLUCONAZOLE [Concomitant]
  11. MORPHINE [Concomitant]
  12. MIDAZOLAM HCL [Concomitant]
  13. IMMUNOGLOBULINS [Concomitant]

REACTIONS (2)
  - CHOREA [None]
  - TREMOR [None]
